FAERS Safety Report 5595785-5 (Version None)
Quarter: 2008Q1

REPORT INFORMATION
  Report Type: 
  Country: None (occurrence: None)
  Receive Date: 20080118
  Receipt Date: 20080110
  Transmission Date: 20080703
  Serious: Yes (Hospitalization)
  Sender: FDA-Public Use
  Company Number: B0503516A

PATIENT
  Age: 38 Year
  Sex: Male

DRUGS (7)
  1. AUGMENTIN '125' [Suspect]
     Indication: COUGH
     Dosage: 1G THREE TIMES PER DAY
     Route: 048
     Dates: start: 20071126, end: 20071202
  2. PREVISCAN [Suspect]
     Dosage: 20MG PER DAY
     Route: 048
     Dates: start: 20071130, end: 20071202
  3. ARIXTRA [Concomitant]
     Dosage: 7.5MG PER DAY
     Route: 058
     Dates: start: 20071129
  4. ZIAGEN [Concomitant]
     Dosage: 300MG TWICE PER DAY
     Route: 048
     Dates: start: 20040101
  5. TELZIR [Concomitant]
     Dosage: 700MG TWICE PER DAY
     Route: 048
     Dates: start: 20040101
  6. VIRAMUNE [Concomitant]
     Dosage: 200MG TWICE PER DAY
     Route: 048
     Dates: start: 20040101
  7. NORVIR [Concomitant]
     Dosage: 100MG TWICE PER DAY
     Route: 048
     Dates: start: 20040101

REACTIONS (1)
  - NEUTROPENIA [None]
